FAERS Safety Report 21115625 (Version 2)
Quarter: 2022Q3

REPORT INFORMATION
  Report Type: Spontaneous
  Country: US (occurrence: US)
  Receive Date: 20220721
  Receipt Date: 20220923
  Transmission Date: 20221026
  Serious: No
  Sender: FDA-Public Use
  Company Number: US-SA-2022SA283619

PATIENT
  Age: 35 Year
  Sex: Female

DRUGS (1)
  1. DUPILUMAB [Suspect]
     Active Substance: DUPILUMAB
     Indication: Dermatitis atopic
     Dosage: 300 MG, QOW
     Route: 058
     Dates: start: 20220306

REACTIONS (2)
  - Skin mass [Not Recovered/Not Resolved]
  - Skin discolouration [Unknown]

NARRATIVE: CASE EVENT DATE: 20220101
